FAERS Safety Report 5039718-9 (Version None)
Quarter: 2006Q2

REPORT INFORMATION
  Report Type: 
  Country: None (occurrence: None)
  Receive Date: 20060601
  Receipt Date: 20060601
  Transmission Date: 20061013
  Serious: No
  Sender: FDA-Public Use
  Company Number: 2006PV006717

PATIENT
  Age: 72 Year
  Sex: Male
  Weight: 80.7403 kg

DRUGS (6)
  1. BYETTA [Suspect]
     Indication: DIABETES MELLITUS NON-INSULIN-DEPENDENT
     Dosage: 5 MCG;BID;SC
     Route: 058
     Dates: start: 20060105
  2. LYRICA [Suspect]
     Dosage: 75 MG
     Dates: start: 20060101
  3. METFORMIN [Concomitant]
  4. AMARYL [Concomitant]
  5. LANTUS [Concomitant]
  6. NITROGLYCERIN PILL [Concomitant]

REACTIONS (5)
  - DECREASED APPETITE [None]
  - DIFFICULTY IN WALKING [None]
  - DIZZINESS [None]
  - NAUSEA [None]
  - SUDDEN ONSET OF SLEEP [None]
